FAERS Safety Report 9251419 (Version 1)
Quarter: 2013Q1

REPORT INFORMATION
  Report Type: Spontaneous
  Country: US (occurrence: None)
  Receive Date: 20130305
  Receipt Date: 20130305
  Transmission Date: 20140127
  Serious: Yes (Other)
  Sender: FDA-Public Use
  Company Number: 163-21880-12090378

PATIENT
  Age: 69 Year
  Sex: Male
  Weight: 72.12 kg

DRUGS (5)
  1. REVLIMID [Suspect]
     Indication: PLASMA CELL MYELOMA
     Dosage: 3DAYS A WEEK
     Route: 048
     Dates: start: 201207, end: 20120905
  2. NORCS(ALL OTHER THERAPEUTIC PRODUCTS)(UNKNOWN) [Concomitant]
  3. METOPROLOL(METOPROLOL)(UNKNOWN) [Concomitant]
  4. NEXIUM(ESOMEPRAZOLE) (UNKNOWN) [Concomitant]
  5. NEURONTIN(GABAPENTIN)(UNKNOWN) [Concomitant]

REACTIONS (1)
  - Platelet count decreased [None]
